FAERS Safety Report 7888314-4 (Version None)
Quarter: 2011Q4

REPORT INFORMATION
  Report Type: 
  Country: None (occurrence: None)
  Receive Date: 20111103
  Receipt Date: 20111021
  Transmission Date: 20120403
  Serious: Yes (Hospitalization)
  Sender: FDA-Public Use
  Company Number: US-BAYER-2011-048176

PATIENT
  Age: 33 Year
  Sex: Female
  Weight: 105.6 kg

DRUGS (20)
  1. QVAR 40 [Concomitant]
     Dosage: 80 MCG/24HR, BID
  2. NITROFURANTOIN [Concomitant]
     Dosage: 100 MG, BID
     Route: 048
  3. HYDROCODONE BITARTRATE [Concomitant]
     Dosage: 5 MG, UNK
  4. TRIAMTERENE [Concomitant]
     Dosage: 37.5 MG, QD
     Route: 048
     Dates: start: 20060101, end: 20100201
  5. ALBUTEROL [Concomitant]
  6. LANTUS [Concomitant]
     Route: 058
  7. TRILEPTAL [Concomitant]
     Dosage: 600 MG, BID
     Route: 048
  8. FLUCONAZOLE [Concomitant]
     Dosage: 100 MG, QD
     Route: 048
     Dates: start: 20090606
  9. ROCEPHIN [Concomitant]
     Dosage: 1 G, ONCE
     Route: 042
  10. METFORMIN HCL [Concomitant]
     Dosage: 500 MG, BID
     Route: 048
  11. PROMETHAZINE [Concomitant]
     Dosage: 12.5 MG, UNK
  12. YAZ [Suspect]
     Indication: PREMENSTRUAL SYNDROME
     Dosage: UNK
     Dates: start: 20090101, end: 20090101
  13. NORVASC [Concomitant]
     Dosage: 5 MG, QD
     Route: 048
     Dates: start: 20060101, end: 20100201
  14. YAZ [Suspect]
  15. ZOLOFT [Concomitant]
     Dosage: 100 MG, QD
     Route: 048
  16. PRAVASTATIN [Concomitant]
     Dosage: 20 MG, QD
     Route: 048
  17. OMEPRAZOLE [Concomitant]
     Dosage: 20 MG, QD
     Route: 048
  18. LOPRESSOR [Concomitant]
     Dosage: 50 MG, QD
     Route: 048
  19. BACTRIM DS [Concomitant]
     Dosage: UNK UNK, BID
     Route: 048
     Dates: start: 20090606
  20. PREDNISONE [Concomitant]
     Dosage: 40 MG, QD
     Route: 048
     Dates: start: 20090606

REACTIONS (3)
  - PAIN [None]
  - PULMONARY EMBOLISM [None]
  - POST-TRAUMATIC STRESS DISORDER [None]
